FAERS Safety Report 15225748 (Version 2)
Quarter: 2019Q2

REPORT INFORMATION
  Report Type: Spontaneous
  Country: US (occurrence: US)
  Receive Date: 20180801
  Receipt Date: 20190501
  Transmission Date: 20190711
  Serious: No
  Sender: FDA-Public Use
  Company Number: US-PFIZER INC-2018006572

PATIENT
  Sex: Female

DRUGS (1)
  1. DOCETAXEL. [Suspect]
     Active Substance: DOCETAXEL
     Dosage: UNK, CYCLIC (4 CYCLES)
     Dates: start: 20150804, end: 20151009

REACTIONS (1)
  - Alopecia [Not Recovered/Not Resolved]
